FAERS Safety Report 14652570 (Version 1)
Quarter: 2018Q1

REPORT INFORMATION
  Report Type: Spontaneous
  Country: US (occurrence: US)
  Receive Date: 20180319
  Receipt Date: 20180319
  Transmission Date: 20180509
  Serious: No
  Sender: FDA-Public Use
  Company Number: US-JNJFOC-20180233499

PATIENT
  Age: 33 Year
  Sex: Female
  Weight: 44.45 kg

DRUGS (1)
  1. TYLENOL EXTRA STRENGTH [Suspect]
     Active Substance: ACETAMINOPHEN
     Indication: TOOTHACHE
     Dosage: 2 GELS ONCE
     Route: 048
     Dates: start: 20180221, end: 20180221

REACTIONS (1)
  - Drug ineffective [Unknown]
